FAERS Safety Report 18840620 (Version 2)
Quarter: 2021Q4

REPORT INFORMATION
  Report Type: Spontaneous
  Country: DE (occurrence: DE)
  Receive Date: 20210204
  Receipt Date: 20211117
  Transmission Date: 20220303
  Serious: Yes (Other)
  Sender: FDA-Public Use
  Company Number: DE-CADRBFARM-2021012545

PATIENT
  Age: 39 Year
  Sex: Male
  Weight: 73 kg

DRUGS (5)
  1. LEVETIRACETAM [Suspect]
     Active Substance: LEVETIRACETAM
     Indication: Epilepsy
     Dosage: 2X1000 MG DISCONTINUED IN 250 MG STEPS, LAST 250 MG
     Route: 048
  2. LEVETIRACETAM [Suspect]
     Active Substance: LEVETIRACETAM
     Dosage: 2X1000 MG DISCONTINUED IN 250 MG STEPS, LAST 250 MG
     Route: 048
     Dates: start: 20201015
  3. ASPIRIN [Concomitant]
     Active Substance: ASPIRIN
     Indication: Product used for unknown indication
     Dosage: UNK
     Route: 065
  4. ATORVASTATIN [Concomitant]
     Active Substance: ATORVASTATIN
     Indication: Product used for unknown indication
     Dosage: UNK
     Route: 065
  5. METOPROLOL [Concomitant]
     Active Substance: METOPROLOL
     Indication: Product used for unknown indication
     Route: 065

REACTIONS (8)
  - Mental impairment [Recovering/Resolving]
  - Fatigue [Unknown]
  - Erythema [Unknown]
  - Dizziness [Recovering/Resolving]
  - Gait disturbance [Recovering/Resolving]
  - Micturition urgency [Recovering/Resolving]
  - Pyrexia [Recovering/Resolving]
  - Daydreaming [Recovering/Resolving]

NARRATIVE: CASE EVENT DATE: 20210101
